FAERS Safety Report 21253458 (Version 1)
Quarter: 2022Q3

REPORT INFORMATION
  Report Type: Spontaneous
  Country: US (occurrence: None)
  Receive Date: 20220824
  Receipt Date: 20220824
  Transmission Date: 20221027
  Serious: No
  Sender: FDA-Public Use
  Company Number: None

PATIENT
  Age: 77 Year
  Sex: Male

DRUGS (1)
  1. LISINOPRIL [Suspect]
     Active Substance: LISINOPRIL
     Dosage: FREQUENCY : DAILY;?
     Route: 048
     Dates: start: 20211221, end: 20220609

REACTIONS (5)
  - Angioedema [None]
  - Dyspnoea [None]
  - Anaphylactic reaction [None]
  - Pharyngeal swelling [None]
  - Lip swelling [None]

NARRATIVE: CASE EVENT DATE: 20220614
